FAERS Safety Report 20219272 (Version 1)
Quarter: 2021Q4

REPORT INFORMATION
  Report Type: Report from Study
  Country: CH (occurrence: CG)
  Receive Date: 20211222
  Receipt Date: 20211222
  Transmission Date: 20220303
  Serious: Yes (Hospitalization)
  Sender: FDA-Public Use
  Company Number: CH-BAYER-2014-147590

PATIENT
  Age: 42 Year
  Sex: Male

DRUGS (2)
  1. NIFURTIMOX [Suspect]
     Active Substance: NIFURTIMOX
     Indication: African trypanosomiasis
     Dosage: 8 DF, DOSAGE FORM
     Dates: start: 20090911, end: 20090920
  2. EFLORNITHINE [Suspect]
     Active Substance: EFLORNITHINE
     Indication: African trypanosomiasis
     Dosage: 128 ML, UNK
     Dates: start: 20090911, end: 20090917

REACTIONS (1)
  - Affective disorder [Recovered/Resolved]

NARRATIVE: CASE EVENT DATE: 20090913
